FAERS Safety Report 12123868 (Version 1)
Quarter: 2016Q1

REPORT INFORMATION
  Report Type: Other
  Country: BR (occurrence: BR)
  Receive Date: 20160228
  Receipt Date: 20160228
  Transmission Date: 20160526
  Serious: Yes (Hospitalization, Other)
  Sender: FDA-Public Use
  Company Number: BR-DEXPHARM-20160194

PATIENT
  Age: 65 Year
  Sex: Female

DRUGS (6)
  1. ESTROGEN [Concomitant]
     Active Substance: ESTRONE\SUS SCROFA OVARY
     Indication: MENOPAUSE
  2. OMEPRAZOLE. [Suspect]
     Active Substance: OMEPRAZOLE
     Indication: GASTRIC ULCER
     Dosage: OVER THE PREVIOUS TEN YEARS
  3. OMEPRAZOLE. [Suspect]
     Active Substance: OMEPRAZOLE
     Indication: GASTRITIS
     Dosage: OVER THE PREVIOUS TEN YEARS
  4. LOSARTAN. [Concomitant]
     Active Substance: LOSARTAN
  5. PROGESTIN [Concomitant]
     Active Substance: PROGESTERONE
     Indication: MENOPAUSE
  6. METFORMIN [Concomitant]
     Active Substance: METFORMIN HYDROCHLORIDE
     Indication: DIABETES MELLITUS

REACTIONS (4)
  - Hypomagnesaemia [Recovered/Resolved]
  - Hypoparathyroidism [Recovered/Resolved]
  - Long QT syndrome [Recovered/Resolved]
  - Hypocalcaemia [Recovered/Resolved]
